FAERS Safety Report 6026769-0 (Version None)
Quarter: 2009Q1

REPORT INFORMATION
  Report Type: 
  Country: None (occurrence: None)
  Receive Date: 20090105
  Receipt Date: 20081230
  Transmission Date: 20090719
  Serious: No
  Sender: FDA-Public Use
  Company Number: US-JNJFOC-20090100069

PATIENT
  Sex: Male
  Weight: 108.86 kg

DRUGS (3)
  1. FENTANYL TRANSDERMAL SYSTEM [Suspect]
     Indication: BACK PAIN
     Dosage: 25 UG/HR AND 12.5 UG/HR PATCH
     Route: 062
  2. UNSPECIFIED MEDICATION [Concomitant]
     Indication: SLEEP DISORDER
     Route: 065
  3. UNSPECIFIED MEDICATION [Concomitant]
     Indication: PAIN
     Route: 065

REACTIONS (5)
  - HYPERHIDROSIS [None]
  - INCORRECT DRUG ADMINISTRATION DURATION [None]
  - INSOMNIA [None]
  - THINKING ABNORMAL [None]
  - WRONG TECHNIQUE IN DRUG USAGE PROCESS [None]
